FAERS Safety Report 10720577 (Version 1)
Quarter: 2015Q1

REPORT INFORMATION
  Report Type: Spontaneous
  Country: US (occurrence: US)
  Receive Date: 20150119
  Receipt Date: 20150119
  Transmission Date: 20150721
  Serious: No
  Sender: FDA-Public Use
  Company Number: US-UNITED THERAPEUTICS-UNT-2014-008995

PATIENT
  Age: 18 Year
  Sex: Female

DRUGS (2)
  1. OPSUMIT [Suspect]
     Active Substance: MACITENTAN
     Indication: PRODUCT USED FOR UNKNOWN INDICATION
  2. TYVASO [Suspect]
     Active Substance: TREPROSTINIL
     Indication: COR PULMONALE CHRONIC
     Dosage: 54 MICROGRAMS, QID
     Dates: start: 20111209

REACTIONS (6)
  - Oxygen saturation increased [Unknown]
  - Eructation [Unknown]
  - Abdominal pain upper [Unknown]
  - Feeling cold [Unknown]
  - Yawning [Unknown]
  - Feeling hot [Unknown]

NARRATIVE: CASE EVENT DATE: 20140908
